FAERS Safety Report 8515236-8 (Version None)
Quarter: 2012Q3

REPORT INFORMATION
  Report Type: 
  Country: None (occurrence: None)
  Receive Date: 20120705
  Receipt Date: 20120621
  Transmission Date: 20120928
  Serious: Yes (Other)
  Sender: FDA-Public Use
  Company Number: 2011MA002958

PATIENT
  Sex: Female

DRUGS (10)
  1. PENTASA [Concomitant]
  2. NEXIUM [Concomitant]
  3. ADVAIR DISKUS 100/50 [Concomitant]
  4. DEPAKOTE [Concomitant]
  5. METOCLOPRAMIDE [Suspect]
     Indication: PRODUCT USED FOR UNKNOWN INDICATION
     Dosage: 10 MG
     Dates: start: 20011107, end: 20051201
  6. ALLEGRA [Concomitant]
  7. AMITRIPTYLINE HCL [Concomitant]
  8. SINGULAIR [Concomitant]
  9. ZITHROMAX [Concomitant]
  10. RHINOCORT [Concomitant]

REACTIONS (8)
  - EXTRAPYRAMIDAL DISORDER [None]
  - DYSTONIA [None]
  - DYSKINESIA [None]
  - TARDIVE DYSKINESIA [None]
  - AKATHISIA [None]
  - EMOTIONAL DISORDER [None]
  - TREMOR [None]
  - ECONOMIC PROBLEM [None]
